FAERS Safety Report 18683036 (Version 1)
Quarter: 2020Q4

REPORT INFORMATION
  Report Type: Spontaneous
  Country: US (occurrence: US)
  Receive Date: 20201230
  Receipt Date: 20201230
  Transmission Date: 20210114
  Serious: No
  Sender: FDA-Public Use
  Company Number: US-ENDO PHARMACEUTICALS INC-2019-110161

PATIENT
  Sex: Male

DRUGS (1)
  1. XIAFLEX [Suspect]
     Active Substance: COLLAGENASE CLOSTRIDIUM HISTOLYTICUM
     Indication: PEYRONIE^S DISEASE
     Dosage: UNK UNKNOWN, UNKNOWN
     Route: 026

REACTIONS (4)
  - Painful erection [Unknown]
  - Penis disorder [Unknown]
  - Penile swelling [Unknown]
  - Spontaneous penile erection [Unknown]

NARRATIVE: CASE EVENT DATE: 20191120
